FAERS Safety Report 13775294 (Version 1)
Quarter: 2017Q3

REPORT INFORMATION
  Report Type: Spontaneous
  Country: US (occurrence: US)
  Receive Date: 20170720
  Receipt Date: 20170720
  Transmission Date: 20171127
  Serious: No
  Sender: FDA-Public Use
  Company Number: US-MYLANLABS-2016M1057243

PATIENT
  Sex: Male

DRUGS (2)
  1. PREDNISONE. [Suspect]
     Active Substance: PREDNISONE
     Indication: ROTATOR CUFF SYNDROME
  2. PREDNISONE. [Suspect]
     Active Substance: PREDNISONE
     Indication: HYPERSENSITIVITY
     Dosage: 5 MG, UNK

REACTIONS (1)
  - Weight increased [Unknown]
